FAERS Safety Report 10606461 (Version 1)
Quarter: 2014Q4

REPORT INFORMATION
  Report Type: Spontaneous
  Country: US (occurrence: US)
  Receive Date: 20141125
  Receipt Date: 20141125
  Transmission Date: 20150529
  Serious: Yes (Death, Hospitalization)
  Sender: FDA-Public Use
  Company Number: US-CIPLA LTD.-2014US02093

PATIENT

DRUGS (1)
  1. AMLODIPINE [Suspect]
     Active Substance: AMLODIPINE BESYLATE
     Indication: HYPERTENSION
     Dosage: 5 MG (27 TABLETS)

REACTIONS (9)
  - Hyponatraemia [Unknown]
  - Anaemia [Unknown]
  - Organ failure [Unknown]
  - Pleural effusion [Unknown]
  - Mental status changes [Unknown]
  - Toxicity to various agents [Fatal]
  - Hypotension [Unknown]
  - Pulmonary oedema [Unknown]
  - Hyperlipidaemia [Unknown]
